FAERS Safety Report 5012542-9 (Version None)
Quarter: 2006Q2

REPORT INFORMATION
  Report Type: 
  Country: None (occurrence: None)
  Receive Date: 20060526
  Receipt Date: 20060518
  Transmission Date: 20061013
  Serious: Yes (Hospitalization)
  Sender: FDA-Public Use
  Company Number: FR-MERCK-0605USA04466

PATIENT
  Age: 69 Year
  Sex: Female
  Weight: 83 kg

DRUGS (4)
  1. MODURETIC 5-50 [Suspect]
     Route: 048
  2. ALPRESS LP [Suspect]
     Route: 065
     Dates: end: 20060301
  3. CORTANCYL [Concomitant]
     Route: 065
  4. COLCHICINE [Concomitant]
     Route: 065

REACTIONS (2)
  - HYPERTENSIVE CRISIS [None]
  - ORTHOSTATIC HYPERTENSION [None]
